FAERS Safety Report 10142186 (Version 1)
Quarter: 2014Q2

REPORT INFORMATION
  Report Type: Spontaneous
  Country: US (occurrence: US)
  Receive Date: 20140430
  Receipt Date: 20140430
  Transmission Date: 20141212
  Serious: Yes (Other)
  Sender: FDA-Public Use
  Company Number: US-SANOFI-AVENTIS-2013SA066841

PATIENT
  Sex: Male

DRUGS (1)
  1. CLOMID [Suspect]
     Route: 065
     Dates: start: 1992

REACTIONS (3)
  - Congenital hand malformation [Not Recovered/Not Resolved]
  - Exposure during pregnancy [Unknown]
  - Congenital joint malformation [Not Recovered/Not Resolved]
